FAERS Safety Report 7772740-8 (Version None)
Quarter: 2011Q3

REPORT INFORMATION
  Report Type: 
  Country: None (occurrence: None)
  Receive Date: 20110922
  Receipt Date: 20101013
  Transmission Date: 20111222
  Serious: No
  Sender: FDA-Public Use
  Company Number: US-ASTRAZENECA-2010SE48578

PATIENT
  Age: 45 Year
  Sex: Female

DRUGS (2)
  1. SEROQUEL XR [Suspect]
     Route: 048
     Dates: start: 20100912, end: 20100101
  2. CYMBALTA [Concomitant]

REACTIONS (3)
  - NIGHTMARE [None]
  - PANIC ATTACK [None]
  - HALLUCINATION [None]
